FAERS Safety Report 9201848 (Version 1)
Quarter: 2013Q1

REPORT INFORMATION
  Report Type: Spontaneous
  Country: US (occurrence: None)
  Receive Date: 20130328
  Receipt Date: 20130328
  Transmission Date: 20140127
  Serious: Yes (Hospitalization)
  Sender: FDA-Public Use
  Company Number: 2013PL0000050

PATIENT
  Age: 40 Year
  Sex: Female

DRUGS (1)
  1. LOTRONEX [Suspect]
     Indication: PRODUCT USED FOR UNKNOWN INDICATION

REACTIONS (6)
  - Nasopharyngitis [None]
  - Influenza [None]
  - Colitis ischaemic [None]
  - Vomiting [None]
  - Pain [None]
  - Diarrhoea [None]
